FAERS Safety Report 8640331 (Version 2)
Quarter: 2013Q2

REPORT INFORMATION
  Report Type: Report from Study
  Country: US (occurrence: US)
  Receive Date: 20120628
  Receipt Date: 20130627
  Transmission Date: 20140414
  Serious: Yes (Other)
  Sender: FDA-Public Use
  Company Number: US-MYLANLABS-2012S1006488

PATIENT
  Age: 44 Year
  Sex: Male

DRUGS (11)
  1. CLOZAPINE TABLETS [Suspect]
     Dates: end: 201204
  2. CLOZAPINE TABLETS [Suspect]
     Dates: start: 201204, end: 20120530
  3. CLOZAPINE TABLETS [Suspect]
     Route: 048
     Dates: start: 20120604, end: 20120617
  4. CLOZAPINE TABLETS [Suspect]
     Route: 048
     Dates: start: 20120604, end: 20120617
  5. TRIFLUOPERAZINE [Concomitant]
  6. MVI [Concomitant]
  7. BENZTROPINE [Concomitant]
  8. FOLIC ACID [Concomitant]
  9. DOCUSATE [Concomitant]
  10. CALCIUM PLUS VITAMIN D [Concomitant]
  11. DEPAKOTE [Concomitant]

REACTIONS (1)
  - Granulocytopenia [Not Recovered/Not Resolved]
